FAERS Safety Report 8187654-1 (Version None)
Quarter: 2012Q1

REPORT INFORMATION
  Report Type: 
  Country: None (occurrence: None)
  Receive Date: 20120306
  Receipt Date: 20120302
  Transmission Date: 20120608
  Serious: Yes (Hospitalization, Other)
  Sender: FDA-Public Use
  Company Number: US-PFIZER INC-2011054332

PATIENT
  Sex: Male

DRUGS (12)
  1. CHANTIX [Suspect]
     Indication: SMOKING CESSATION THERAPY
     Dosage: STARTER PAK AND CONTINUING PAK, UNK
     Dates: start: 20070803, end: 20070903
  2. ADVAIR DISKUS 100/50 [Concomitant]
     Indication: CHRONIC OBSTRUCTIVE PULMONARY DISEASE
     Dosage: UNK
     Dates: start: 20050101
  3. SPIRIVA [Concomitant]
     Indication: CHRONIC OBSTRUCTIVE PULMONARY DISEASE
     Dosage: UNK
     Dates: start: 20050101
  4. CHANTIX [Suspect]
     Dosage: STARTER PAK AND CONTINUING PAK, UNK
     Dates: start: 20080507, end: 20080607
  5. FLUOXETINE [Concomitant]
     Indication: DEPRESSION
  6. ALBUTEROL [Concomitant]
     Indication: CHRONIC OBSTRUCTIVE PULMONARY DISEASE
     Dosage: UNK
     Dates: start: 20050101
  7. AMLODIPINE [Concomitant]
     Indication: MYOCARDIAL ISCHAEMIA
     Dosage: UNK
     Dates: start: 20080301
  8. CHANTIX [Suspect]
     Dosage: STARTER PAK AND CONTINUING PAK, UNK
     Dates: start: 20071011, end: 20070101
  9. CHANTIX [Suspect]
     Dosage: STARTER PAK AND CONTINUING PAK, UNK
     Dates: start: 20080204, end: 20080426
  10. ACETYLSALICYLIC ACID [Concomitant]
     Indication: MYOCARDIAL ISCHAEMIA
     Dosage: UNK
     Dates: start: 20080301
  11. ISOSORBIDE DINITRATE [Concomitant]
     Indication: MYOCARDIAL ISCHAEMIA
     Dosage: UNK
     Dates: start: 20080301
  12. FLUOXETINE [Concomitant]
     Indication: ANXIETY
     Dosage: UNK
     Dates: start: 20050101

REACTIONS (4)
  - INTENTIONAL OVERDOSE [None]
  - INJURY [None]
  - SUICIDE ATTEMPT [None]
  - DEPRESSION [None]
